FAERS Safety Report 4345652-X (Version None)
Quarter: 2004Q2

REPORT INFORMATION
  Report Type: 
  Country: None (occurrence: None)
  Receive Date: 20040421
  Receipt Date: 20040406
  Transmission Date: 20050107
  Serious: Yes (Death, Other)
  Sender: FDA-Public Use
  Company Number: USA-2003-0010683

PATIENT
  Age: 17 Year
  Sex: Male

DRUGS (3)
  1. OXYCONTIN [Suspect]
     Indication: PAIN
     Dosage: MG
  2. ALCOHOL(ETHANOL) [Suspect]
     Dosage: L
  3. MUSCLE RELAXANTS [Suspect]
     Dosage: MG

REACTIONS (6)
  - BLOOD ALCOHOL INCREASED [None]
  - DRUG ABUSER [None]
  - INJURY [None]
  - POISONING [None]
  - POLYSUBSTANCE ABUSE [None]
  - ROAD TRAFFIC ACCIDENT [None]
